FAERS Safety Report 7807916-4 (Version None)
Quarter: 2011Q4

REPORT INFORMATION
  Report Type: 
  Country: None (occurrence: None)
  Receive Date: 20111011
  Receipt Date: 20111011
  Transmission Date: 20120403
  Serious: Yes (Hospitalization)
  Sender: FDA-Public Use
  Company Number: None

PATIENT
  Age: 56 Year
  Sex: Female
  Weight: 100 kg

DRUGS (4)
  1. DOCETAXEL [Concomitant]
     Indication: ADJUVANT THERAPY
     Dosage: 156 MG
     Route: 042
     Dates: start: 20110906, end: 20110927
  2. DOCETAXEL [Concomitant]
     Indication: BREAST CANCER
     Dosage: 156 MG
     Route: 042
     Dates: start: 20110906, end: 20110927
  3. CYTOXAN [Suspect]
     Indication: ADJUVANT THERAPY
     Dosage: 1248 MG
     Route: 042
     Dates: start: 20110906, end: 20110927
  4. CYTOXAN [Suspect]
     Indication: BREAST CANCER
     Dosage: 1248 MG
     Route: 042
     Dates: start: 20110906, end: 20110927

REACTIONS (3)
  - MUSCULAR WEAKNESS [None]
  - PARAESTHESIA [None]
  - DYSSTASIA [None]
